FAERS Safety Report 9251867 (Version 1)
Quarter: 2013Q1

REPORT INFORMATION
  Report Type: Spontaneous
  Country: US (occurrence: None)
  Receive Date: 20130305
  Receipt Date: 20130305
  Transmission Date: 20140127
  Serious: Yes (Other)
  Sender: FDA-Public Use
  Company Number: 163-21880-12091055

PATIENT
  Age: 55 Year
  Sex: Female

DRUGS (14)
  1. REVLIMID [Suspect]
     Indication: PLASMA CELL MYELOMA
     Route: 048
     Dates: start: 20090909, end: 2009
  2. LORATIDINE [Concomitant]
  3. PROAIR (FLUTICASONE PROPIONATE) [Concomitant]
  4. ANUSOL (ANUSOL) [Concomitant]
  5. ACID REDUCER (RANITIDINE HYDROCHLORIDE) [Concomitant]
  6. SYMBICORT (SYMBICORT TURBUHALER ^DRACO^) [Concomitant]
  7. CALCIUM PLUS D (CALCIUM + VIT D) [Concomitant]
  8. VITAMINS [Concomitant]
  9. ALPRAZOLAM (ALPRAZOLAM) [Concomitant]
  10. ABILIFY (ARIPIPRAZOLE) [Concomitant]
  11. ASPIRIN (ACETYLSALICYLIC ACID) [Concomitant]
  12. NYSTATIN (NYSTATIN) [Concomitant]
  13. BIAXIN (CLARITHROMYCIN) [Concomitant]
  14. DEXAMETHASONE (DEXAMETHASONE) [Concomitant]

REACTIONS (2)
  - Pelvic fracture [None]
  - Staphylococcal infection [None]
